FAERS Safety Report 11428723 (Version 1)
Quarter: 2015Q3

REPORT INFORMATION
  Report Type: Spontaneous
  Country: US (occurrence: None)
  Receive Date: 20150827
  Receipt Date: 20150827
  Transmission Date: 20151125
  Serious: Yes (Life-Threatening, Hospitalization)
  Sender: FDA-Public Use
  Company Number: None

PATIENT
  Age: 33 Year
  Sex: Female
  Weight: 77.11 kg

DRUGS (1)
  1. PARAGARD T 380A [Suspect]
     Active Substance: COPPER
     Dates: start: 20140228, end: 20150817

REACTIONS (4)
  - Ectopic pregnancy [None]
  - Pregnancy with contraceptive device [None]
  - Localised intraabdominal fluid collection [None]
  - Intra-abdominal haemorrhage [None]

NARRATIVE: CASE EVENT DATE: 20150813
